FAERS Safety Report 13093732 (Version 1)
Quarter: 2017Q1

REPORT INFORMATION
  Report Type: Spontaneous
  Country: US (occurrence: US)
  Receive Date: 20170106
  Receipt Date: 20170106
  Transmission Date: 20170428
  Serious: No
  Sender: FDA-Public Use
  Company Number: US-BAYER-2016-224052

PATIENT
  Age: 81 Year
  Sex: Female
  Weight: 89.8 kg

DRUGS (15)
  1. CENTURY (MINERALS\VITAMINS) [Suspect]
     Active Substance: MINERALS\VITAMINS
     Indication: VITAMIN SUPPLEMENTATION
     Dosage: 1 DF, QD
     Route: 048
  2. OXYBUTYNIN [Concomitant]
     Active Substance: OXYBUTYNIN
     Indication: INCONTINENCE
     Dosage: 15 MG, OM
  3. COSAMIN DS [Concomitant]
     Indication: ARTHRITIS
     Dosage: 1 DF, BID
     Dates: start: 2006
  4. ALEVE [Suspect]
     Active Substance: NAPROXEN SODIUM
     Indication: ARTHRITIS
     Dosage: 220 MG, HS
     Dates: start: 2004
  5. COQ10 [Concomitant]
     Active Substance: UBIDECARENONE
     Indication: NUTRITIONAL SUPPLEMENTATION
     Dosage: 50 MG, OM
     Dates: start: 2006
  6. SYSTANE [MACROGOL,PROPYLENE GLYCOL] [Concomitant]
     Indication: DRY EYE
     Dosage: 1-2 DF, PRN
  7. LATANOPROST. [Concomitant]
     Active Substance: LATANOPROST
     Indication: GLAUCOMA
     Dosage: 1 DF, AT NIGHT
     Dates: start: 2015
  8. TYLENOL ARTHRITIS PAIN [Concomitant]
     Active Substance: ACETAMINOPHEN
     Indication: ARTHRITIS
     Dosage: 400 MG, OM
     Dates: start: 2004
  9. IBUPROFEN. [Concomitant]
     Active Substance: IBUPROFEN
     Indication: ARTHRITIS
     Dosage: 2 DF, IN THE AFTERNOON
     Dates: start: 2004
  10. LISINOPRIL. [Concomitant]
     Active Substance: LISINOPRIL
     Dosage: 1 DF, QD, BEFORE BED
  11. VITAMIN D [Concomitant]
     Active Substance: CHOLECALCIFEROL
     Indication: VITAMIN SUPPLEMENTATION
     Dosage: 1000 U, QD
     Dates: start: 2013
  12. ACIDOPHILUS [Concomitant]
     Active Substance: LACTOBACILLUS ACIDOPHILUS
     Indication: GASTROINTESTINAL DISORDER
     Dosage: 1 DF, OM, WITH BREAKFAST
  13. NEXIUM [Suspect]
     Active Substance: ESOMEPRAZOLE MAGNESIUM
     Indication: DYSPEPSIA
     Dosage: 22.3 MG, OM
     Route: 048
     Dates: start: 201603, end: 201603
  14. COMBIGAN [Concomitant]
     Active Substance: BRIMONIDINE TARTRATE\TIMOLOL MALEATE
     Indication: GLAUCOMA
     Dosage: 1 DF, BID
     Dates: start: 2006
  15. OMEGA-3 [SALMO SALAR OIL] [Concomitant]
     Dosage: 300 MG, UNK

REACTIONS (2)
  - Hypoaesthesia [Recovering/Resolving]
  - Paraesthesia [Recovering/Resolving]

NARRATIVE: CASE EVENT DATE: 201603
